FAERS Safety Report 6885344-6 (Version None)
Quarter: 2010Q3

REPORT INFORMATION
  Report Type: 
  Country: None (occurrence: None)
  Receive Date: 20100726
  Receipt Date: 20100708
  Transmission Date: 20110219
  Serious: Yes (Other)
  Sender: FDA-Public Use
  Company Number: CIO10009677

PATIENT
  Age: 21 Year
  Sex: Male

DRUGS (1)
  1. CREST TARTAR PROTECTION WHITENING TOOTHPASTE, COOL MINT FLAVOR (SODIUM [Suspect]
     Dosage: 1 APPLIC, 1/DAY FOR 2 DAYS, INTRAORAL
     Route: 048
     Dates: start: 20100707, end: 20100708

REACTIONS (5)
  - ERYTHEMA [None]
  - LOCAL SWELLING [None]
  - PHARYNGEAL OEDEMA [None]
  - PRURITUS [None]
  - THROAT IRRITATION [None]
